FAERS Safety Report 21487500 (Version 1)
Quarter: 2022Q4

REPORT INFORMATION
  Report Type: Spontaneous
  Country: RS (occurrence: RS)
  Receive Date: 20221020
  Receipt Date: 20221020
  Transmission Date: 20230112
  Serious: Yes (Death, Hospitalization, Other)
  Sender: FDA-Public Use
  Company Number: RS-UCBSA-2022060508

PATIENT
  Age: 3 Month
  Sex: Male

DRUGS (3)
  1. KEPPRA [Suspect]
     Active Substance: LEVETIRACETAM
     Indication: Epilepsy
     Dosage: DOSES TEN TIMES HIGHER THAN THE PRESCRIBED ONES.
  2. PHENOBARBITAL [Suspect]
     Active Substance: PHENOBARBITAL
     Indication: Epilepsy
     Dosage: DOSES TEN TIMES HIGHER THAN THE PRESCRIBED ONES.
  3. VALPROIC ACID [Concomitant]
     Active Substance: VALPROIC ACID
     Indication: Epilepsy
     Dosage: UNK

REACTIONS (6)
  - Somnolence [Unknown]
  - Dyspnoea [Unknown]
  - Coma [Unknown]
  - Respiratory arrest [Unknown]
  - Toxicity to various agents [Fatal]
  - Overdose [Unknown]
